FAERS Safety Report 7133191-2 (Version None)
Quarter: 2010Q4

REPORT INFORMATION
  Report Type: 
  Country: None (occurrence: None)
  Receive Date: 20101117
  Receipt Date: 20101102
  Transmission Date: 20110411
  Serious: Yes (Hospitalization)
  Sender: FDA-Public Use
  Company Number: 018020

PATIENT
  Sex: Female

DRUGS (1)
  1. CIMZIA [Suspect]
     Indication: CROHN'S DISEASE
     Dosage: 499 MG, 1X/4 WEEKS; SUBCUTANEOUS
     Route: 058
     Dates: start: 20100531

REACTIONS (4)
  - ABDOMINAL HERNIA REPAIR [None]
  - ADHESION [None]
  - GASTROINTESTINAL DISORDER POSTOPERATIVE [None]
  - SMALL INTESTINAL OBSTRUCTION [None]
